FAERS Safety Report 5663956-5 (Version None)
Quarter: 2008Q1

REPORT INFORMATION
  Report Type: 
  Country: None (occurrence: None)
  Receive Date: 20080314
  Receipt Date: 20080304
  Transmission Date: 20080703
  Serious: Yes (Other)
  Sender: FDA-Public Use
  Company Number: US-JNJFOC-20080301609

PATIENT
  Sex: Male
  Weight: 127.01 kg

DRUGS (5)
  1. DURAGESIC-100 [Suspect]
     Indication: PAIN
     Route: 062
  2. ZITHROMAX [Suspect]
     Indication: NASOPHARYNGITIS
     Route: 048
  3. ANTI-INFLAMMATORY [Suspect]
     Indication: NASOPHARYNGITIS
     Route: 048
  4. VICODIN [Concomitant]
     Indication: PAIN
     Route: 048
  5. BLOOD PRESSURE MEDICATION [Concomitant]
     Route: 048

REACTIONS (7)
  - COAGULATION TEST ABNORMAL [None]
  - EPISTAXIS [None]
  - NASOPHARYNGITIS [None]
  - OEDEMA PERIPHERAL [None]
  - PAIN IN EXTREMITY [None]
  - THROMBOSIS [None]
  - URTICARIA [None]
